FAERS Safety Report 9142801 (Version 1)
Quarter: 2013Q1

REPORT INFORMATION
  Report Type: Spontaneous
  Country: FR (occurrence: FR)
  Receive Date: 20130306
  Receipt Date: 20130306
  Transmission Date: 20140127
  Serious: Yes (Hospitalization, Other)
  Sender: FDA-Public Use
  Company Number: FR-ELI_LILLY_AND_COMPANY-FR201302008786

PATIENT
  Age: 57 Year
  Sex: Male

DRUGS (6)
  1. HUMALOG LISPRO [Suspect]
     Indication: DIABETES MELLITUS
     Dosage: 14 IU, TID
     Route: 058
  2. LANTUS [Concomitant]
     Indication: DIABETES MELLITUS
     Dosage: 24 IU, QD
  3. METFORMIN [Concomitant]
     Indication: DIABETES MELLITUS
     Dosage: UNK
  4. AVLOCARDYL [Concomitant]
     Dosage: 160 MG, QD
  5. PROPRANOLOL [Concomitant]
     Dosage: 80 MG, QD
  6. PROPRANOLOL [Concomitant]
     Dosage: 40 MG, BID

REACTIONS (5)
  - Hypoglycaemic unconsciousness [Recovered/Resolved]
  - Vertigo [Recovered/Resolved]
  - Hypoglycaemic unconsciousness [Recovered/Resolved]
  - Hyperhidrosis [Recovered/Resolved]
  - Anaemia macrocytic [Unknown]
